FAERS Safety Report 11201869 (Version 1)
Quarter: 2015Q2

REPORT INFORMATION
  Report Type: Spontaneous
  Country: US (occurrence: None)
  Receive Date: 20150617
  Receipt Date: 20150617
  Transmission Date: 20150821
  Serious: Yes (Hospitalization)
  Sender: FDA-Public Use
  Company Number: FK201502832

PATIENT
  Age: 3 Year
  Sex: Male

DRUGS (1)
  1. PAMIDRONATE [Suspect]
     Active Substance: PAMIDRONATE DISODIUM
     Indication: OSTEOGENESIS IMPERFECTA
     Dosage: INFUSION OVER 4 HOUR 3MONTHS OR EARLIER
     Route: 042

REACTIONS (7)
  - Off label use [None]
  - Tachycardia [None]
  - Hypertension [None]
  - Body temperature abnormal [None]
  - Atelectasis [None]
  - Respiratory failure [None]
  - Infusion related reaction [None]
